FAERS Safety Report 17023646 (Version 1)
Quarter: 2019Q4

REPORT INFORMATION
  Report Type: Spontaneous
  Country: DE (occurrence: DE)
  Receive Date: 20191113
  Receipt Date: 20191113
  Transmission Date: 20200122
  Serious: No
  Sender: FDA-Public Use
  Company Number: DE-HORMOSAN PHARMA GMBH-2019-06357

PATIENT

DRUGS (2)
  1. PAROXETIN-HORMOSAN TABLETTEN [Suspect]
     Active Substance: PAROXETINE HYDROCHLORIDE
     Indication: PRODUCT USED FOR UNKNOWN INDICATION
     Dosage: UNK (TOO HIGH OR TOO LOW DOSE)
     Route: 065
  2. PAROXETIN-HORMOSAN 33,1MG/ML TROPFEN [Suspect]
     Active Substance: PAROXETINE MESYLATE
     Indication: PRODUCT USED FOR UNKNOWN INDICATION
     Dosage: UNK (TOO HIGH OR TOO LOW DOSE)
     Route: 065

REACTIONS (3)
  - Dizziness [Unknown]
  - Depressed mood [Unknown]
  - Product availability issue [Unknown]
